FAERS Safety Report 15211607 (Version 1)
Quarter: 2018Q3

REPORT INFORMATION
  Report Type: Spontaneous
  Country: US (occurrence: US)
  Receive Date: 20180702
  Receipt Date: 20180702
  Transmission Date: 20181010
  Serious: No
  Sender: FDA-Public Use
  Company Number: None

PATIENT
  Sex: Female
  Weight: 116.57 kg

DRUGS (2)
  1. BENLYSTA [Suspect]
     Active Substance: BELIMUMAB
     Indication: SYSTEMIC LUPUS ERYTHEMATOSUS
     Dosage: ?          OTHER FREQUENCY:Q4W;?
     Route: 042
     Dates: start: 20170501
  2. BENLYSTA [Suspect]
     Active Substance: BELIMUMAB
     Dosage: ?          OTHER FREQUENCY:Q4W;?
     Route: 042

REACTIONS (1)
  - Pyrexia [None]
